FAERS Safety Report 7380044-0 (Version None)
Quarter: 2011Q1

REPORT INFORMATION
  Report Type: 
  Country: None (occurrence: None)
  Receive Date: 20110329
  Receipt Date: 20110321
  Transmission Date: 20110831
  Serious: Yes (Other)
  Sender: FDA-Public Use
  Company Number: FR-SANOFI-AVENTIS-2009SA008927

PATIENT
  Age: 60 Year
  Sex: Male

DRUGS (6)
  1. NEULASTA [Suspect]
     Indication: PREMEDICATION
     Route: 058
     Dates: start: 20081124, end: 20090429
  2. CISPLATIN [Suspect]
     Indication: LUNG ADENOCARCINOMA METASTATIC
     Route: 042
     Dates: start: 20081124, end: 20090429
  3. AVASTIN [Suspect]
     Indication: LUNG ADENOCARCINOMA METASTATIC
     Route: 042
     Dates: start: 20081124, end: 20090429
  4. TRANDOLAPRIL [Concomitant]
     Route: 048
  5. TAXOTERE [Suspect]
     Indication: LUNG ADENOCARCINOMA METASTATIC
     Route: 042
     Dates: start: 20081124, end: 20090429
  6. TARCEVA [Suspect]
     Indication: LUNG ADENOCARCINOMA METASTATIC
     Route: 048
     Dates: start: 20090528

REACTIONS (3)
  - EJECTION FRACTION DECREASED [None]
  - DILATATION VENTRICULAR [None]
  - HYPOKINESIA [None]
